FAERS Safety Report 7506524-2 (Version None)
Quarter: 2011Q2

REPORT INFORMATION
  Report Type: 
  Country: None (occurrence: None)
  Receive Date: 20110526
  Receipt Date: 20110516
  Transmission Date: 20111010
  Serious: Yes (Life-Threatening, Hospitalization)
  Sender: FDA-Public Use
  Company Number: JP-MERCK-1105USA02012

PATIENT
  Age: 74 Year
  Sex: Female

DRUGS (7)
  1. AMLODIPINE BESYLATE [Concomitant]
     Indication: HYPERTENSION
     Route: 048
     Dates: end: 20110505
  2. LAMISIL [Suspect]
     Indication: TINEA PEDIS
     Dosage: DAILY DOSAGE UNKNOWN
     Route: 048
     Dates: end: 20110505
  3. AMLODIPINE BESYLATE [Concomitant]
     Route: 048
     Dates: start: 20110509
  4. PREDNISOLONE [Concomitant]
     Dosage: DAILY DOSAGE UNKNOWN
     Route: 065
     Dates: start: 20110509
  5. HYZAAR [Suspect]
     Indication: HYPERTENSION
     Route: 048
     Dates: end: 20110505
  6. PREDNISOLONE [Concomitant]
     Dosage: DIVIDED DOSE FREQUENCY UNKNOWN
     Route: 065
     Dates: end: 20110505
  7. FOSAMAX [Suspect]
     Indication: OSTEOPOROSIS
     Route: 048
     Dates: end: 20110505

REACTIONS (1)
  - RHABDOMYOLYSIS [None]
